FAERS Safety Report 6267176-5 (Version None)
Quarter: 2009Q3

REPORT INFORMATION
  Report Type: 
  Country: None (occurrence: None)
  Receive Date: 20090714
  Receipt Date: 20090709
  Transmission Date: 20100115
  Serious: Yes (Life-Threatening, Hospitalization)
  Sender: FDA-Public Use
  Company Number: US-JNJFOC-20090702969

PATIENT
  Sex: Female

DRUGS (3)
  1. ULTRAM ER [Suspect]
     Route: 048
  2. ULTRAM ER [Suspect]
     Indication: DRUG USE FOR UNKNOWN INDICATION
     Route: 048
  3. ETHANOL [Interacting]
     Indication: DRUG USE FOR UNKNOWN INDICATION
     Dosage: DOSE: ^6^
     Route: 065

REACTIONS (4)
  - DRUG INTERACTION [None]
  - ELECTROCARDIOGRAM QT PROLONGED [None]
  - LOSS OF CONSCIOUSNESS [None]
  - POISONING [None]
